FAERS Safety Report 19073931 (Version 14)
Quarter: 2022Q2

REPORT INFORMATION
  Report Type: Spontaneous
  Country: BR (occurrence: BR)
  Receive Date: 20210330
  Receipt Date: 20220628
  Transmission Date: 20220721
  Serious: Yes (Hospitalization, Other)
  Sender: FDA-Public Use
  Company Number: BR-GLAXOSMITHKLINE-BR2021AMR070151

PATIENT

DRUGS (3)
  1. NUCALA [Suspect]
     Active Substance: MEPOLIZUMAB
     Indication: Asthma
     Dosage: 100 MG, Z (4 WEEKS)
     Route: 042
     Dates: start: 20210220, end: 20210722
  2. PREDNISONE [Suspect]
     Active Substance: PREDNISONE
     Indication: Product used for unknown indication
     Dosage: 40 MG
  3. COVID-19 VACCINE [Concomitant]
     Indication: COVID-19 prophylaxis
     Dosage: UNK
     Dates: start: 20210526

REACTIONS (39)
  - Asthmatic crisis [Not Recovered/Not Resolved]
  - Hospitalisation [Recovered/Resolved]
  - Pulmonary oedema [Not Recovered/Not Resolved]
  - Haemorrhage [Recovered/Resolved]
  - Leiomyoma [Unknown]
  - Urinary tract infection [Not Recovered/Not Resolved]
  - Fatigue [Recovering/Resolving]
  - Pain [Recovered/Resolved]
  - Chills [Recovered/Resolved]
  - Malaise [Not Recovered/Not Resolved]
  - Condition aggravated [Unknown]
  - Chest discomfort [Not Recovered/Not Resolved]
  - Choking sensation [Not Recovered/Not Resolved]
  - Cough [Recovering/Resolving]
  - Breath sounds abnormal [Unknown]
  - Insomnia [Not Recovered/Not Resolved]
  - Middle insomnia [Not Recovered/Not Resolved]
  - Tension [Unknown]
  - Symptom recurrence [Unknown]
  - Blood glucose increased [Unknown]
  - Speech disorder [Unknown]
  - Back pain [Recovering/Resolving]
  - Mobility decreased [Unknown]
  - Chest pain [Not Recovered/Not Resolved]
  - Paraesthesia [Unknown]
  - Dyspnoea [Not Recovered/Not Resolved]
  - Skin discolouration [Unknown]
  - Anxiety [Not Recovered/Not Resolved]
  - Feeling abnormal [Unknown]
  - Loss of personal independence in daily activities [Unknown]
  - Crying [Unknown]
  - Pulmonary pain [Not Recovered/Not Resolved]
  - Depressed mood [Unknown]
  - Incision site discharge [Not Recovered/Not Resolved]
  - Impaired healing [Unknown]
  - Social problem [Unknown]
  - Therapeutic product ineffective [Unknown]
  - Product dose omission issue [Unknown]
  - Product availability issue [Unknown]

NARRATIVE: CASE EVENT DATE: 20210101
